FAERS Safety Report 11709797 (Version 2)
Quarter: 2015Q4

REPORT INFORMATION
  Report Type: Spontaneous
  Country: US (occurrence: US)
  Receive Date: 20151104
  Receipt Date: 20151110
  Transmission Date: 20160304
  Serious: No
  Sender: FDA-Public Use
  Company Number: US-ELI_LILLY_AND_COMPANY-US201105007373

PATIENT
  Age: 48 Year
  Sex: Female

DRUGS (1)
  1. FORTEO [Suspect]
     Active Substance: TERIPARATIDE
     Indication: OSTEOPOROSIS
     Dosage: 20 UG, QD
     Dates: start: 201103

REACTIONS (9)
  - Oestradiol increased [Unknown]
  - Breast mass [Unknown]
  - Nephrolithiasis [Unknown]
  - Hormone level abnormal [Unknown]
  - Post procedural complication [Recovering/Resolving]
  - Blood oestrogen abnormal [Unknown]
  - Oestrone increased [Unknown]
  - Anaemia [Unknown]
  - Post procedural infection [Recovering/Resolving]

NARRATIVE: CASE EVENT DATE: 20110303
